FAERS Safety Report 4315108-9 (Version None)
Quarter: 2004Q1

REPORT INFORMATION
  Report Type: 
  Country: None (occurrence: None)
  Receive Date: 20040309
  Receipt Date: 20040223
  Transmission Date: 20041129
  Serious: Yes (Hospitalization)
  Sender: FDA-Public Use
  Company Number: GBT040101137

PATIENT
  Age: 66 Year
  Sex: Male
  Weight: 86 kg

DRUGS (10)
  1. PEMETREXED [Suspect]
     Indication: MESOTHELIOMA
     Dosage: 950 MG/1 OTHER
     Route: 050
     Dates: start: 20031113, end: 20031209
  2. CARBOPLATIN [Suspect]
     Indication: MESOTHELIOMA
     Dosage: 555 MG/1 OTHER
     Route: 050
     Dates: start: 20031113, end: 20031209
  3. VITAMIN B-12 [Concomitant]
  4. FOLIC ACID [Concomitant]
  5. DICLOFENAC [Concomitant]
  6. GABAPENTIN [Concomitant]
  7. AMITRIPTYLINE HCL [Concomitant]
  8. AMLODIPINE [Concomitant]
  9. LANSOPRAZOLE [Concomitant]
  10. MORPHINE SULFATE [Concomitant]

REACTIONS (6)
  - CONFUSIONAL STATE [None]
  - ENCEPHALITIS VIRAL [None]
  - HAEMOGLOBIN DECREASED [None]
  - MUCOSAL INFLAMMATION [None]
  - NEUTROPENIA [None]
  - RED BLOOD CELL COUNT DECREASED [None]
